FAERS Safety Report 6451001-3 (Version None)
Quarter: 2009Q4

REPORT INFORMATION
  Report Type: 
  Country: None (occurrence: None)
  Receive Date: 20091123
  Receipt Date: 20091116
  Transmission Date: 20100525
  Serious: Yes (Hospitalization)
  Sender: FDA-Public Use
  Company Number: B0604780A

PATIENT
  Sex: Female

DRUGS (7)
  1. LANOXIN [Suspect]
     Indication: DRUG USE FOR UNKNOWN INDICATION
     Dosage: 125MCG PER DAY
     Route: 048
     Dates: end: 20091001
  2. LANOXIN [Suspect]
     Dosage: 62.5MCG PER DAY
     Route: 048
     Dates: start: 20091001, end: 20091113
  3. LEVOTHYROXINE SODIUM [Concomitant]
  4. NITROFURANTOIN [Concomitant]
  5. METOCLOPRAMIDE [Concomitant]
  6. CYCLIZINE [Concomitant]
  7. DIGIBIND [Concomitant]

REACTIONS (5)
  - ATRIOVENTRICULAR BLOCK [None]
  - BRADYCARDIA [None]
  - CARDIOACTIVE DRUG LEVEL INCREASED [None]
  - CREATININE RENAL CLEARANCE DECREASED [None]
  - KIDNEY INFECTION [None]
